FAERS Safety Report 10611484 (Version 1)
Quarter: 2014Q4

REPORT INFORMATION
  Report Type: Spontaneous
  Country: JP (occurrence: JP)
  Receive Date: 20141126
  Receipt Date: 20141126
  Transmission Date: 20150529
  Serious: Yes (Hospitalization)
  Sender: FDA-Public Use
  Company Number: JP-009507513-1411JPN010373

PATIENT
  Age: 81 Year
  Sex: Female

DRUGS (2)
  1. SULINDAC. [Suspect]
     Active Substance: SULINDAC
     Dosage: UNK
     Route: 048
     Dates: start: 201309, end: 201310
  2. MUCOSTA [Suspect]
     Active Substance: REBAMIPIDE
     Route: 048

REACTIONS (1)
  - Drug-induced liver injury [Unknown]
